FAERS Safety Report 6284135-7 (Version None)
Quarter: 2009Q3

REPORT INFORMATION
  Report Type: 
  Country: None (occurrence: None)
  Receive Date: 20090727
  Receipt Date: 20090714
  Transmission Date: 20100115
  Serious: Yes (Hospitalization, Other)
  Sender: FDA-Public Use
  Company Number: US-RANBAXY-2009US-25637

PATIENT

DRUGS (3)
  1. LORAZEPAM [Suspect]
     Indication: AGITATION
     Dosage: UNK, UNK
     Route: 065
  2. LORAZEPAM [Suspect]
     Indication: ANXIETY
  3. CARVEDILOL [Suspect]
     Indication: HYPERTENSION
     Dosage: 6.25 MG, BID
     Route: 065

REACTIONS (3)
  - BRADYKINESIA [None]
  - PARKINSONIAN REST TREMOR [None]
  - SUICIDE ATTEMPT [None]
